FAERS Safety Report 12070547 (Version 4)
Quarter: 2017Q1

REPORT INFORMATION
  Report Type: Spontaneous
  Country: US (occurrence: US)
  Receive Date: 20160211
  Receipt Date: 20170103
  Transmission Date: 20170428
  Serious: Yes (Death, Disabling, Other)
  Sender: FDA-Public Use
  Company Number: US-ACTELION-A-NJ2016-131087

PATIENT
  Age: 61 Year
  Sex: Female

DRUGS (2)
  1. ADCIRCA [Concomitant]
     Active Substance: TADALAFIL
     Dosage: 20 MG, UNK
  2. TRACLEER [Suspect]
     Active Substance: BOSENTAN
     Indication: PULMONARY HYPERTENSION
     Dosage: 125 MG, UNK
     Route: 048
     Dates: start: 20090826, end: 20160822

REACTIONS (3)
  - Metastatic squamous cell carcinoma [Not Recovered/Not Resolved]
  - Squamous cell carcinoma of the tongue [Fatal]
  - Glossectomy [Not Recovered/Not Resolved]

NARRATIVE: CASE EVENT DATE: 20151021
